FAERS Safety Report 8101303-X (Version None)
Quarter: 2012Q1

REPORT INFORMATION
  Report Type: 
  Country: None (occurrence: None)
  Receive Date: 20120131
  Receipt Date: 20120125
  Transmission Date: 20120608
  Serious: Yes (Hospitalization)
  Sender: FDA-Public Use
  Company Number: AU-B.I. PHARMACEUTICALS,INC./RIDGEFIELD-2011-AU-01729AU

PATIENT
  Sex: Male
  Weight: 73 kg

DRUGS (6)
  1. SOTALOL HYDROCHLORIDE [Concomitant]
     Dosage: 320 MG
  2. PERINDOPRIL ERBUMINE [Concomitant]
     Dosage: 5 MG
  3. COLGOUT [Concomitant]
     Dosage: 500 MCG
  4. SIMVASTATIN [Concomitant]
     Dosage: 10 MG
  5. DIGOXIN [Concomitant]
     Dosage: 62.5 MCG
  6. PRADAXA [Suspect]
     Indication: ATRIAL FIBRILLATION
     Dates: start: 20110702, end: 20110708

REACTIONS (3)
  - HAEMARTHROSIS [None]
  - DEEP VEIN THROMBOSIS [None]
  - URINARY RETENTION [None]
